FAERS Safety Report 5782376-6 (Version None)
Quarter: 2008Q2

REPORT INFORMATION
  Report Type: 
  Country: None (occurrence: None)
  Receive Date: 20080623
  Receipt Date: 20080605
  Transmission Date: 20081010
  Serious: Yes (Other)
  Sender: FDA-Public Use
  Company Number: US-BAYER-200812352BCC

PATIENT
  Age: 23 Year
  Sex: Female

DRUGS (1)
  1. PHILLIPS LIQUID GEL [Suspect]
     Indication: CONSTIPATION
     Dosage: AS USED: 2 DF
     Route: 048
     Dates: start: 20080605

REACTIONS (6)
  - ANXIETY [None]
  - DYSPNOEA [None]
  - FOREIGN BODY TRAUMA [None]
  - RETCHING [None]
  - SENSATION OF FOREIGN BODY [None]
  - VOMITING [None]
